FAERS Safety Report 5645105-2 (Version None)
Quarter: 2008Q1

REPORT INFORMATION
  Report Type: 
  Country: None (occurrence: None)
  Receive Date: 20080229
  Receipt Date: 20080220
  Transmission Date: 20080703
  Serious: Yes (Other)
  Sender: FDA-Public Use
  Company Number: KR-ROCHE-548931

PATIENT
  Age: 51 Year
  Sex: Female

DRUGS (4)
  1. PEGASYS [Suspect]
     Indication: HEPATITIS C
     Route: 065
  2. RIBAVIRIN [Suspect]
     Indication: HEPATITIS C
     Route: 065
  3. SERTRALINE [Concomitant]
     Indication: DEPRESSION
     Dosage: DRUG REPORTED AS SETRALINE.
  4. LORAZEPAM [Concomitant]
     Indication: DEPRESSION

REACTIONS (2)
  - MYALGIA [None]
  - VASCULITIS [None]
